FAERS Safety Report 24618149 (Version 2)
Quarter: 2025Q2

REPORT INFORMATION
  Report Type: Spontaneous
  Country: HK (occurrence: HK)
  Receive Date: 20241114
  Receipt Date: 20250401
  Transmission Date: 20250716
  Serious: Yes (Death, Life-Threatening, Other)
  Sender: AMGEN
  Company Number: HK-AMGEN-HKGSP2024222089

PATIENT

DRUGS (2)
  1. PANITUMUMAB [Suspect]
     Active Substance: PANITUMUMAB
     Indication: Colorectal cancer metastatic
     Route: 065
  2. FRUQUINTINIB [Suspect]
     Active Substance: FRUQUINTINIB
     Indication: Colorectal cancer metastatic
     Dosage: 5 MILLIGRAM, QD (3 WEEKS ON, 1 WEEK OFF)
     Route: 065

REACTIONS (19)
  - Death [Fatal]
  - Proteinuria [Unknown]
  - Hypertension [Unknown]
  - Palmar-plantar erythrodysaesthesia syndrome [Unknown]
  - Diarrhoea [Unknown]
  - Stomatitis [Unknown]
  - Haemorrhage [Unknown]
  - Skin reaction [Unknown]
  - Blood bilirubin increased [Unknown]
  - Colorectal cancer metastatic [Unknown]
  - Hypothyroidism [Unknown]
  - Thrombocytopenia [Unknown]
  - Alanine aminotransferase increased [Unknown]
  - Dysphonia [Unknown]
  - Fatigue [Unknown]
  - Weight decreased [Unknown]
  - Decreased appetite [Unknown]
  - Bone pain [Unknown]
  - Therapy partial responder [Unknown]
